FAERS Safety Report 4873181-3 (Version None)
Quarter: 2005Q4

REPORT INFORMATION
  Report Type: 
  Country: None (occurrence: None)
  Receive Date: 20051201
  Receipt Date: 20050817
  Transmission Date: 20060501
  Serious: No
  Sender: FDA-Public Use
  Company Number: 2005PV001275

PATIENT
  Age: 65 Year
  Sex: Female
  Weight: 116.1208 kg

DRUGS (10)
  1. BYETTA [Suspect]
     Indication: DIABETES MELLITUS NON-INSULIN-DEPENDENT
     Dosage: 10 MCG; BID; SC; 5 MCG; BID; SC
     Route: 058
     Dates: start: 20050714, end: 20050814
  2. BYETTA [Suspect]
     Indication: DIABETES MELLITUS NON-INSULIN-DEPENDENT
     Dosage: 10 MCG; BID; SC; 5 MCG; BID; SC
     Route: 058
     Dates: start: 20050815
  3. ACTOS [Concomitant]
  4. LIPITOR [Concomitant]
  5. CYMBALTA [Concomitant]
  6. AMBIEN [Concomitant]
  7. MOBIC [Concomitant]
  8. PREVACID [Concomitant]
  9. FUROSEMIDE [Concomitant]
  10. EVISTA [Concomitant]

REACTIONS (1)
  - INJECTION SITE URTICARIA [None]
